FAERS Safety Report 24067311 (Version 1)
Quarter: 2024Q3

REPORT INFORMATION
  Report Type: Spontaneous
  Country: US (occurrence: US)
  Receive Date: 20240709
  Receipt Date: 20240709
  Transmission Date: 20241017
  Serious: No
  Sender: AMARIN
  Company Number: US-Amarin Pharma  Inc-2024AMR000204

PATIENT
  Age: 76 Year
  Sex: Male

DRUGS (6)
  1. VASCEPA [Suspect]
     Active Substance: ICOSAPENT ETHYL
     Indication: Cardiac disorder
     Dosage: 2 CAP AM AND 2 CAP PM
     Dates: start: 2021
  2. LISINOPRIL [Concomitant]
     Active Substance: LISINOPRIL
     Indication: Product used for unknown indication
  3. ROSUVASTATIN [Concomitant]
     Active Substance: ROSUVASTATIN
     Indication: Product used for unknown indication
  4. CARVEDILOL [Concomitant]
     Active Substance: CARVEDILOL
     Indication: Product used for unknown indication
  5. ELIQUIS [Concomitant]
     Active Substance: APIXABAN
     Indication: Product used for unknown indication
  6. JARDIANCE [Concomitant]
     Active Substance: EMPAGLIFLOZIN
     Indication: Product used for unknown indication

REACTIONS (3)
  - Poor quality product administered [Unknown]
  - Product odour abnormal [Unknown]
  - Product physical issue [Unknown]

NARRATIVE: CASE EVENT DATE: 20240501
